FAERS Safety Report 24362130 (Version 1)
Quarter: 2024Q3

REPORT INFORMATION
  Report Type: Spontaneous
  Country: GB (occurrence: GB)
  Receive Date: 20240925
  Receipt Date: 20240925
  Transmission Date: 20241017
  Serious: Yes (Other)
  Sender: TEVA
  Company Number: GB-CHEPLA-2024011606

PATIENT
  Age: 64 Year
  Sex: Male

DRUGS (2)
  1. OMEPRAZOLE [Suspect]
     Active Substance: OMEPRAZOLE
     Indication: Gastrooesophageal reflux disease
     Dosage: 2000 AND PRESENT
     Route: 065
     Dates: start: 2000
  2. CLOZAPINE [Suspect]
     Active Substance: CLOZAPINE
     Indication: Schizophrenia
     Route: 065

REACTIONS (8)
  - Deafness [Unknown]
  - Dyscalculia [Unknown]
  - Amnesia [Unknown]
  - Crying [Unknown]
  - Abdominal pain upper [Unknown]
  - Dry eye [Unknown]
  - Vision blurred [Unknown]
  - Gastrooesophageal reflux disease [Unknown]
